FAERS Safety Report 8049522-5 (Version None)
Quarter: 2012Q1

REPORT INFORMATION
  Report Type: 
  Country: None (occurrence: None)
  Receive Date: 20120117
  Receipt Date: 20120111
  Transmission Date: 20120608
  Serious: Yes (Other)
  Sender: FDA-Public Use
  Company Number: US-BAYER-2012-004235

PATIENT
  Age: 70 Year
  Sex: Male
  Weight: 77.098 kg

DRUGS (6)
  1. PROVENTIL [Concomitant]
  2. SODIUM BICARBONATE [Suspect]
     Indication: ABDOMINAL DISCOMFORT
     Dosage: UNK
     Route: 048
     Dates: start: 20110101, end: 20110101
  3. DILTIAZEM HCL [Concomitant]
  4. SEREVENT [Concomitant]
  5. DIURETICS [Concomitant]
  6. LISINOPRIL [Concomitant]

REACTIONS (4)
  - BRONCHIAL OBSTRUCTION [None]
  - INCREASED BRONCHIAL SECRETION [None]
  - DYSPNOEA [None]
  - BRONCHIAL DISORDER [None]
